FAERS Safety Report 25285863 (Version 2)
Quarter: 2025Q3

REPORT INFORMATION
  Report Type: Report from Study
  Country: US (occurrence: US)
  Receive Date: 20250509
  Receipt Date: 20250810
  Transmission Date: 20251020
  Serious: Yes (Other)
  Sender: ALEXION PHARMACEUTICALS
  Company Number: US-AstraZeneca-CH-00864088A

PATIENT
  Age: 70 Year
  Sex: Female

DRUGS (1)
  1. EPLONTERSEN SODIUM [Suspect]
     Active Substance: EPLONTERSEN SODIUM
     Indication: Polyneuropathy
     Dosage: 45 MILLIGRAM, QMONTH
     Dates: start: 20240830

REACTIONS (2)
  - Cardiac failure chronic [Recovered/Resolved]
  - Weight increased [Recovered/Resolved]

NARRATIVE: CASE EVENT DATE: 20250502
